FAERS Safety Report 7757616-4 (Version None)
Quarter: 2011Q3

REPORT INFORMATION
  Report Type: 
  Country: None (occurrence: None)
  Receive Date: 20110916
  Receipt Date: 20110914
  Transmission Date: 20111222
  Serious: Yes (Hospitalization)
  Sender: FDA-Public Use
  Company Number: BR-ABBOTT-11P-020-0853748-00

PATIENT
  Sex: Female
  Weight: 61.7 kg

DRUGS (1)
  1. HUMIRA [Suspect]
     Indication: CROHN'S DISEASE
     Dates: start: 20110126

REACTIONS (8)
  - JOINT SWELLING [None]
  - ERYTHEMA [None]
  - DIARRHOEA [None]
  - ABDOMINAL PAIN [None]
  - CROHN'S DISEASE [None]
  - NAUSEA [None]
  - VOMITING [None]
  - GASTROINTESTINAL INFLAMMATION [None]
